FAERS Safety Report 7083501-X (Version None)
Quarter: 2010Q4

REPORT INFORMATION
  Report Type: 
  Country: None (occurrence: None)
  Receive Date: 20101104
  Receipt Date: 20101026
  Transmission Date: 20110411
  Serious: Yes (Other)
  Sender: FDA-Public Use
  Company Number: DE-TEVA-2010R0806291

PATIENT
  Sex: Male
  Weight: 83 kg

DRUGS (2)
  1. BISOPROLOL (BISOPROLOL-RATIOPHARM 5 MG TABLETTEN) [Suspect]
     Indication: HYPERTENSION
     Route: 048
     Dates: start: 20080101
  2. SPIRONOLACTONE (SPIRONOLACTON-RATIOPHARM 100 MG) [Concomitant]
     Dates: start: 20090601

REACTIONS (1)
  - GASTRIC HAEMORRHAGE [None]
